FAERS Safety Report 19977078 (Version 1)
Quarter: 2021Q4

REPORT INFORMATION
  Report Type: Report from Study
  Country: EG (occurrence: EG)
  Receive Date: 20211021
  Receipt Date: 20211021
  Transmission Date: 20220304
  Serious: Yes (Other)
  Sender: FDA-Public Use
  Company Number: EG-NOVARTISPH-NVSC2021EG235893

PATIENT
  Age: 34 Year
  Sex: Female

DRUGS (8)
  1. GILENYA [Suspect]
     Active Substance: FINGOLIMOD HYDROCHLORIDE
     Indication: Multiple sclerosis
     Dosage: 0.5 MG, QD
     Route: 048
     Dates: start: 201604, end: 20210901
  2. PHYSIOMER [Concomitant]
     Indication: Influenza
     Dosage: UNK, QD, WHEN NEEDED
     Route: 045
     Dates: start: 2019
  3. OMEGA-3 FATTY ACIDS [Concomitant]
     Active Substance: OMEGA-3 FATTY ACIDS
     Indication: Supplementation therapy
     Dosage: UNK, EVERY OTHER DAY
     Route: 048
     Dates: start: 2016
  4. VITAMIN D [Concomitant]
     Active Substance: VITAMIN D NOS
     Indication: Vitamin supplementation
     Dosage: UNK, EVERY OTHER DAY
     Route: 048
     Dates: start: 2016
  5. VITAMIN B [Concomitant]
     Active Substance: VITAMIN B
     Indication: Vitamin supplementation
     Dosage: UNK, EVERY OTHER DAY
     Route: 048
     Dates: start: 2016
  6. FOLIC ACID [Concomitant]
     Active Substance: FOLIC ACID
     Indication: Nutritional supplementation
     Dosage: UNK, EVERY OTHER DAY
     Route: 048
     Dates: start: 2016
  7. C RETARD [Concomitant]
     Indication: Vitamin supplementation
     Dosage: UNK, QD
     Route: 048
     Dates: start: 2017
  8. ZYRTEC [Concomitant]
     Active Substance: CETIRIZINE HYDROCHLORIDE
     Indication: Influenza
     Dosage: UNK UNK, QD, WHEN NEEDED
     Route: 048
     Dates: start: 2019

REACTIONS (14)
  - COVID-19 [Recovered/Resolved]
  - Pain [Recovered/Resolved]
  - Cough [Recovered/Resolved]
  - Chest pain [Recovered/Resolved]
  - Headache [Recovered/Resolved]
  - Pyrexia [Recovered/Resolved]
  - White blood cell count decreased [Unknown]
  - Influenza [Recovered/Resolved]
  - Cough [Recovered/Resolved]
  - Pyrexia [Recovered/Resolved]
  - Influenza [Recovered/Resolved]
  - Productive cough [Recovered/Resolved]
  - Pyrexia [Recovered/Resolved]
  - Hepatic enzyme increased [Recovered/Resolved]

NARRATIVE: CASE EVENT DATE: 20170101
